FAERS Safety Report 7079585-5 (Version None)
Quarter: 2010Q4

REPORT INFORMATION
  Report Type: 
  Country: None (occurrence: None)
  Receive Date: 20101102
  Receipt Date: 20101019
  Transmission Date: 20110411
  Serious: Yes (Other)
  Sender: FDA-Public Use
  Company Number: PHHY2010US71217

PATIENT
  Age: 10 Year
  Sex: Male

DRUGS (1)
  1. FOCALIN XR [Suspect]
     Route: 048

REACTIONS (1)
  - OCULOGYRIC CRISIS [None]
